FAERS Safety Report 13745385 (Version 2)
Quarter: 2017Q3

REPORT INFORMATION
  Report Type: Report from Study
  Country: US (occurrence: US)
  Receive Date: 20170712
  Receipt Date: 20170831
  Transmission Date: 20171127
  Serious: Yes (Hospitalization)
  Sender: FDA-Public Use
  Company Number: PHHO2017US010094

PATIENT
  Age: 80 Year
  Sex: Male
  Weight: 81.8 kg

DRUGS (28)
  1. WARFARIN [Suspect]
     Active Substance: WARFARIN
     Dosage: 5 MG, BID
     Route: 048
     Dates: start: 20170705, end: 20170705
  2. METOPROLOL. [Concomitant]
     Active Substance: METOPROLOL
     Dosage: 75 MG, QD
     Route: 048
     Dates: start: 20170708, end: 20170708
  3. BUMETANIDE. [Concomitant]
     Active Substance: BUMETANIDE
     Dosage: 2 MG, QD
     Route: 065
     Dates: start: 20170710, end: 20170711
  4. WARFARIN [Suspect]
     Active Substance: WARFARIN
     Dosage: 3 MG, BID
     Route: 048
     Dates: start: 20170704, end: 20170704
  5. WARFARIN [Suspect]
     Active Substance: WARFARIN
     Dosage: 2 MG, BID
     Route: 048
     Dates: start: 20170719
  6. METOPROLOL. [Concomitant]
     Active Substance: METOPROLOL
     Dosage: 125 MG, QD
     Route: 048
     Dates: start: 20170706, end: 20170706
  7. POTASSIUM CHLORIDE. [Concomitant]
     Active Substance: POTASSIUM CHLORIDE
     Indication: SUPPLEMENTATION THERAPY
     Dosage: 20 MEQ, QD
     Route: 048
     Dates: start: 2015, end: 20170720
  8. WARFARIN [Suspect]
     Active Substance: WARFARIN
     Indication: CARDIAC FAILURE CHRONIC
     Dosage: 5 MG, QD
     Route: 048
     Dates: start: 20170625, end: 20170628
  9. BLINDED ENALAPRIL [Suspect]
     Active Substance: ENALAPRIL
     Dosage: CODE NOT BROKEN
     Route: 048
     Dates: start: 20170605, end: 20170628
  10. BUMETANIDE. [Concomitant]
     Active Substance: BUMETANIDE
     Dosage: 10 MG, TID
     Route: 065
     Dates: start: 20170712, end: 20170712
  11. BUMETANIDE. [Concomitant]
     Active Substance: BUMETANIDE
     Dosage: 2 MG, TID
     Route: 048
     Dates: start: 20170714
  12. WARFARIN [Suspect]
     Active Substance: WARFARIN
     Dosage: 3 MG, BID
     Route: 048
     Dates: start: 20170701, end: 20170701
  13. BLINDED ENALAPRIL [Suspect]
     Active Substance: ENALAPRIL
     Indication: CARDIAC FAILURE ACUTE
     Dosage: CODE NOT BROKEN
     Route: 048
     Dates: start: 20170601, end: 20170602
  14. SIMVASTATIN. [Concomitant]
     Active Substance: SIMVASTATIN
     Indication: BLOOD CHOLESTEROL INCREASED
     Dosage: 80 MG, QHS
     Route: 048
     Dates: start: 2006, end: 20170720
  15. BLINDED LCZ696 [Suspect]
     Active Substance: SACUBITRIL\VALSARTAN
     Dosage: CODE NOT BROKEN
     Route: 048
     Dates: start: 20170605, end: 20170628
  16. BUMETANIDE. [Concomitant]
     Active Substance: BUMETANIDE
     Indication: CARDIAC FAILURE CHRONIC
     Dosage: 2 MG, QD
     Route: 048
     Dates: start: 20170619, end: 20170628
  17. BUMETANIDE. [Concomitant]
     Active Substance: BUMETANIDE
     Dosage: 1 MG, QD
     Route: 065
     Dates: start: 20170708, end: 20170708
  18. WARFARIN [Suspect]
     Active Substance: WARFARIN
     Dosage: 2 MG, BID
     Route: 048
     Dates: start: 20170702, end: 20170703
  19. WARFARIN [Suspect]
     Active Substance: WARFARIN
     Dosage: 3 MG, BID
     Route: 048
     Dates: start: 20170709, end: 20170710
  20. WARFARIN [Suspect]
     Active Substance: WARFARIN
     Dosage: 2.5 MG, BID
     Route: 048
     Dates: start: 20170711, end: 20170718
  21. BLINDED LCZ696 [Suspect]
     Active Substance: SACUBITRIL\VALSARTAN
     Indication: CARDIAC FAILURE ACUTE
     Dosage: CODE NOT BROKEN
     Route: 048
     Dates: start: 20170601, end: 20170602
  22. METOPROLOL. [Concomitant]
     Active Substance: METOPROLOL
     Dosage: 50 MG, BID
     Route: 048
     Dates: start: 20170630, end: 20170705
  23. BUMETANIDE. [Concomitant]
     Active Substance: BUMETANIDE
     Dosage: 2 MG, QD
     Route: 048
     Dates: start: 20170713, end: 20170713
  24. BLINDED NO TREATMENT RECEIVED [Suspect]
     Active Substance: INVESTIGATIONAL PRODUCT
     Indication: CARDIAC FAILURE ACUTE
     Dosage: CODE NOT BROKEN
     Route: 048
     Dates: start: 20170601, end: 20170602
  25. BLINDED NO TREATMENT RECEIVED [Suspect]
     Active Substance: INVESTIGATIONAL PRODUCT
     Dosage: CODE NOT BROKEN
     Route: 048
     Dates: start: 20170605, end: 20170628
  26. METOPROLOL. [Concomitant]
     Active Substance: METOPROLOL
     Indication: HYPERTENSION
     Dosage: 100 MG, BID
     Route: 048
     Dates: start: 2006, end: 20170628
  27. METOPROLOL. [Concomitant]
     Active Substance: METOPROLOL
     Dosage: 75 MG, BID
     Route: 048
     Dates: start: 20170707, end: 20170707
  28. AMIODARONE [Concomitant]
     Active Substance: AMIODARONE
     Indication: ARRHYTHMIA
     Dosage: 400 MG, QD
     Route: 048
     Dates: start: 20170720

REACTIONS (1)
  - Coagulopathy [Recovered/Resolved]

NARRATIVE: CASE EVENT DATE: 20170621
